FAERS Safety Report 7965443-8 (Version None)
Quarter: 2011Q4

REPORT INFORMATION
  Report Type: 
  Country: None (occurrence: None)
  Receive Date: 20111121
  Receipt Date: 20110824
  Transmission Date: 20120403
  Serious: No
  Sender: FDA-Public Use
  Company Number: 1000023147

PATIENT
  Age: 59 Year
  Sex: Female

DRUGS (8)
  1. VIIBRYD [Suspect]
     Indication: DEPRESSION
     Dates: start: 20110823, end: 20110823
  2. ZOCOR [Suspect]
     Indication: BLOOD CHOLESTEROL INCREASED
  3. VIIBRYD [Suspect]
     Indication: DEPRESSION
     Dosage: 10 MG (10 MG, 1 IN 1 D), ORAL
     Route: 048
     Dates: start: 20110701, end: 20110101
  4. VIIBRYD [Suspect]
     Indication: DEPRESSION
     Dosage: 40 MG (40 MG, 1 IN 1 D), ORAL
     Route: 048
     Dates: start: 20110801, end: 20110821
  5. VALIUM (DIAZEPAM) (2.5 MILLIGRAM, TABLETS) (DIAZEPAM) [Concomitant]
  6. ATIVAN [Concomitant]
  7. VIIBRYD [Suspect]
     Indication: DEPRESSION
     Dosage: 20 MG (20 MG, 1 IN 1 D), ORAL
     Route: 048
     Dates: start: 20110822, end: 20110822
  8. VALTREX (VALACICLOVIR HYDROCHLORIDE) (VALACICLOVIR HYDROCHLORIDE) [Concomitant]

REACTIONS (7)
  - MYALGIA [None]
  - DECREASED APPETITE [None]
  - FEELING ABNORMAL [None]
  - DIARRHOEA [None]
  - TACHYPHRENIA [None]
  - DIZZINESS [None]
  - DRUG INTERACTION [None]
